FAERS Safety Report 19754645 (Version 1)
Quarter: 2021Q3

REPORT INFORMATION
  Report Type: Spontaneous
  Country: US (occurrence: US)
  Receive Date: 20210827
  Receipt Date: 20210827
  Transmission Date: 20211014
  Serious: Yes (Life-Threatening, Hospitalization)
  Sender: FDA-Public Use
  Company Number: None

PATIENT
  Age: 67 Year
  Sex: Female
  Weight: 75 kg

DRUGS (4)
  1. BARICITINIB. [Suspect]
     Active Substance: BARICITINIB
     Indication: COVID-19 PNEUMONIA
     Route: 048
     Dates: start: 20210822, end: 20210827
  2. ASPIRIN. [Concomitant]
     Active Substance: ASPIRIN
     Dates: start: 20210822, end: 20210827
  3. ENOXAPARIN [Concomitant]
     Active Substance: ENOXAPARIN
     Dates: start: 20210822, end: 20210827
  4. PANTOPRAZOLE [Concomitant]
     Active Substance: PANTOPRAZOLE
     Dates: start: 20210822

REACTIONS (3)
  - Acute respiratory distress syndrome [None]
  - Gastrointestinal haemorrhage [None]
  - Hypovolaemic shock [None]

NARRATIVE: CASE EVENT DATE: 20210827
